FAERS Safety Report 17714012 (Version 1)
Quarter: 2020Q2

REPORT INFORMATION
  Report Type: Spontaneous
  Country: US (occurrence: US)
  Receive Date: 20200427
  Receipt Date: 20200427
  Transmission Date: 20200714
  Serious: Yes (Death)
  Sender: FDA-Public Use
  Company Number: None

PATIENT
  Age: 42 Year
  Sex: Male
  Weight: 105 kg

DRUGS (1)
  1. HEPARIN [Suspect]
     Active Substance: HEPARIN SODIUM

REACTIONS (4)
  - Coronavirus infection [None]
  - Pulmonary embolism [None]
  - Acute respiratory distress syndrome [None]
  - Cardio-respiratory arrest [None]

NARRATIVE: CASE EVENT DATE: 20200424
